FAERS Safety Report 7912160-6 (Version None)
Quarter: 2011Q4

REPORT INFORMATION
  Report Type: 
  Country: None (occurrence: None)
  Receive Date: 20111114
  Receipt Date: 20111101
  Transmission Date: 20120403
  Serious: Yes (Hospitalization)
  Sender: FDA-Public Use
  Company Number: US-ACTELION-A-NJ2011-49285

PATIENT

DRUGS (15)
  1. COUMADIN [Concomitant]
  2. FOLIC ACID [Concomitant]
  3. AZATHIOPRINE [Concomitant]
  4. DIGOXIN [Concomitant]
  5. DULOXETIME HYDROCHLORIDE [Concomitant]
  6. TRACLEER [Suspect]
     Indication: PULMONARY ARTERIAL HYPERTENSION
     Dosage: 125 MG, BID
     Route: 048
     Dates: start: 20071029
  7. LORAZEPAM [Concomitant]
  8. NIFEDIPINE [Concomitant]
  9. GUANFACINE HYDROCHLORIDE [Concomitant]
  10. LASIX [Concomitant]
  11. BISACODYL [Concomitant]
  12. XOPENEX [Concomitant]
  13. OXYGEN [Concomitant]
  14. OXYCODONE HCL [Concomitant]
  15. HYDROCODONE BITARTRATE [Concomitant]

REACTIONS (9)
  - OEDEMA PERIPHERAL [None]
  - COR PULMONALE [None]
  - DYSPNOEA [None]
  - ACUTE RESPIRATORY FAILURE [None]
  - DEVICE LEAKAGE [None]
  - PULMONARY HYPERTENSION [None]
  - CHRONIC OBSTRUCTIVE PULMONARY DISEASE [None]
  - HYPONATRAEMIA [None]
  - INSOMNIA [None]
